FAERS Safety Report 6263835-9 (Version None)
Quarter: 2009Q3

REPORT INFORMATION
  Report Type: 
  Country: None (occurrence: None)
  Receive Date: 20090701
  Receipt Date: 20090512
  Transmission Date: 20100115
  Serious: Yes (Other)
  Sender: FDA-Public Use
  Company Number: 194831USA

PATIENT

DRUGS (1)
  1. LAMOTRIGINE [Suspect]
     Indication: MANIA
     Dosage: (100 MG) , ORAL
     Route: 048

REACTIONS (12)
  - CONFUSIONAL STATE [None]
  - CRYING [None]
  - DEPRESSION [None]
  - DIZZINESS [None]
  - DRUG INEFFECTIVE [None]
  - FLASHBACK [None]
  - HEADACHE [None]
  - INSOMNIA [None]
  - MANIA [None]
  - NIGHTMARE [None]
  - PSYCHOMOTOR HYPERACTIVITY [None]
  - TACHYPHRENIA [None]
